FAERS Safety Report 4312257-6 (Version None)
Quarter: 2004Q1

REPORT INFORMATION
  Report Type: 
  Country: None (occurrence: None)
  Receive Date: 20040303
  Receipt Date: 20010419
  Transmission Date: 20041129
  Serious: Yes (Other)
  Sender: FDA-Public Use
  Company Number: US-JNJFOC-20031104536

PATIENT
  Age: 70 Year
  Sex: Male
  Weight: 85.9 kg

DRUGS (11)
  1. INFLIXIMAB (INFLIXIMAB, RECOMBINANT) LYOPHILIZED POWDER [Suspect]
     Indication: CROHN'S DISEASE
     Dosage: 10 MG/KG, INTRAVENOUS
     Route: 042
     Dates: start: 19951128
  2. PLACEBO (PLACEBO) LYOPHILIZED POWDER [Suspect]
     Indication: CROHN'S DISEASE
     Dosage: SEE IMAGE
     Route: 042
     Dates: start: 19951023
  3. PLACEBO (PLACEBO) LYOPHILIZED POWDER [Suspect]
     Indication: CROHN'S DISEASE
     Dosage: SEE IMAGE
     Route: 042
     Dates: start: 19960220
  4. PLACEBO (PLACEBO) LYOPHILIZED POWDER [Suspect]
     Indication: CROHN'S DISEASE
     Dosage: SEE IMAGE
     Route: 042
     Dates: start: 19960416
  5. PLACEBO (PLACEBO) LYOPHILIZED POWDER [Suspect]
     Indication: CROHN'S DISEASE
     Dosage: SEE IMAGE
     Route: 042
     Dates: start: 19960611
  6. ZANTAC [Concomitant]
  7. XANAX [Concomitant]
  8. TUMS (CALCIUM CARBONATE) [Concomitant]
  9. PREDNISONE [Concomitant]
  10. FEOSOL (FERROUS SULFATE) [Concomitant]
  11. DESQUAM -E (BENZOYL PEROXIDE) [Concomitant]

REACTIONS (2)
  - EAR NEOPLASM MALIGNANT [None]
  - SQUAMOUS CELL CARCINOMA [None]
